FAERS Safety Report 6754027-5 (Version None)
Quarter: 2010Q2

REPORT INFORMATION
  Report Type: 
  Country: None (occurrence: None)
  Receive Date: 20100603
  Receipt Date: 20100528
  Transmission Date: 20101027
  Serious: Yes (Other)
  Sender: FDA-Public Use
  Company Number: B0658639A

PATIENT
  Age: 16 Year
  Sex: Female

DRUGS (1)
  1. AUGMENTIN '125' [Suspect]
     Indication: BACTERIAL INFECTION
     Dosage: 375MG FOUR TIMES PER DAY

REACTIONS (6)
  - LYMPHOCYTOSIS [None]
  - NEUTROPENIA [None]
  - RASH ERYTHEMATOUS [None]
  - SKIN EXFOLIATION [None]
  - THROMBOCYTOPENIA [None]
  - TRANSAMINASES INCREASED [None]
